FAERS Safety Report 7003530-1 (Version None)
Quarter: 2010Q3

REPORT INFORMATION
  Report Type: 
  Country: None (occurrence: None)
  Receive Date: 20100916
  Receipt Date: 20100903
  Transmission Date: 20110219
  Serious: Yes (Other)
  Sender: FDA-Public Use
  Company Number: 2010AT000013

PATIENT
  Age: 53 Year
  Sex: Male

DRUGS (1)
  1. EDEX [Suspect]
     Indication: ERECTILE DYSFUNCTION
     Dosage: 1.5 OR 2.5 MCG;QD;ICAN
     Dates: start: 20090501

REACTIONS (3)
  - DRUG INEFFECTIVE [None]
  - PENIS DEVIATION [None]
  - PRIAPISM [None]
